FAERS Safety Report 11228977 (Version 1)
Quarter: 2015Q2

REPORT INFORMATION
  Report Type: Spontaneous
  Country: US (occurrence: US)
  Receive Date: 20150630
  Receipt Date: 20150630
  Transmission Date: 20150821
  Serious: No
  Sender: FDA-Public Use
  Company Number: US-ENDO PHARMACEUTICALS INC.-2015-000089

PATIENT
  Age: 76 Year
  Sex: Male

DRUGS (1)
  1. TRIAMCINOLONE ACETONIDE CREAM 0.1% [Suspect]
     Active Substance: TRIAMCINOLONE ACETONIDE
     Indication: BURNS FIRST DEGREE
     Dosage: ONE APPLICATION APPLIED AT DRESSING CHANGE
     Route: 061
     Dates: start: 20150308, end: 20150308

REACTIONS (4)
  - Condition aggravated [Recovering/Resolving]
  - Skin burning sensation [Unknown]
  - Drug hypersensitivity [Unknown]
  - Burns first degree [Recovering/Resolving]

NARRATIVE: CASE EVENT DATE: 20150308
